FAERS Safety Report 10284002 (Version 2)
Quarter: 2014Q3

REPORT INFORMATION
  Report Type: Report from Study
  Country: JP (occurrence: JP)
  Receive Date: 20140708
  Receipt Date: 20140814
  Transmission Date: 20150326
  Serious: Yes (Death, Life-Threatening, Hospitalization)
  Sender: FDA-Public Use
  Company Number: JP-SA-2014SA088082

PATIENT
  Age: 78 Year
  Sex: Male
  Weight: 64.4 kg

DRUGS (12)
  1. CYTOTEC [Suspect]
     Active Substance: MISOPROSTOL
     Indication: GASTRITIS PROPHYLAXIS
     Route: 048
     Dates: start: 20130702, end: 20130704
  2. CYTOTEC [Suspect]
     Active Substance: MISOPROSTOL
     Indication: GASTRITIS PROPHYLAXIS
     Route: 048
     Dates: start: 20130705, end: 20130726
  3. MAINTATE [Concomitant]
     Active Substance: BISOPROLOL FUMARATE
     Indication: PRODUCT USED FOR UNKNOWN INDICATION
     Route: 048
     Dates: end: 20131004
  4. PLETAAL [Concomitant]
     Active Substance: CILOSTAZOL
     Route: 048
     Dates: start: 20090708, end: 20130403
  5. URSO [Concomitant]
     Active Substance: URSODIOL
     Indication: PRODUCT USED FOR UNKNOWN INDICATION
     Route: 048
     Dates: start: 20130707
  6. BAYASPIRIN [Concomitant]
     Active Substance: ASPIRIN
     Indication: UNEVALUABLE EVENT
     Route: 048
     Dates: start: 20130702, end: 20130704
  7. PLAVIX [Suspect]
     Active Substance: CLOPIDOGREL BISULFATE
     Indication: PERIPHERAL ARTERIAL OCCLUSIVE DISEASE
     Route: 048
     Dates: start: 20130404, end: 20130628
  8. TAKEPRON OD [Concomitant]
     Active Substance: LANSOPRAZOLE
     Indication: PROPHYLAXIS
     Route: 048
     Dates: end: 20131004
  9. SELBEX [Concomitant]
     Active Substance: TEPRENONE
     Indication: PROPHYLAXIS
     Route: 048
     Dates: start: 20130702, end: 20131004
  10. BAYASPIRIN [Concomitant]
     Active Substance: ASPIRIN
     Indication: UNEVALUABLE EVENT
     Route: 048
     Dates: start: 20130404, end: 20130628
  11. PLAVIX [Suspect]
     Active Substance: CLOPIDOGREL BISULFATE
     Indication: PERIPHERAL ARTERIAL OCCLUSIVE DISEASE
     Route: 048
     Dates: start: 20130705, end: 20131004
  12. AMLODIPINE/VALSARTAN [Concomitant]
     Active Substance: AMLODIPINE\VALSARTAN
     Indication: PRODUCT USED FOR UNKNOWN INDICATION
     Route: 048
     Dates: end: 20130921

REACTIONS (6)
  - Diarrhoea [Not Recovered/Not Resolved]
  - Diarrhoea [Recovered/Resolved]
  - Oedema peripheral [Not Recovered/Not Resolved]
  - Hepatic function abnormal [Fatal]
  - Oedema peripheral [Not Recovered/Not Resolved]
  - Gastrointestinal haemorrhage [Recovering/Resolving]

NARRATIVE: CASE EVENT DATE: 20130423
